FAERS Safety Report 9187187 (Version 2)
Quarter: 2013Q2

REPORT INFORMATION
  Report Type: Spontaneous
  Country: AU (occurrence: AU)
  Receive Date: 20130322
  Receipt Date: 20130418
  Transmission Date: 20140414
  Serious: Yes (Other)
  Sender: FDA-Public Use
  Company Number: AU-ROCHE-1204018

PATIENT
  Age: 29 Year
  Sex: Female

DRUGS (9)
  1. HERCEPTIN [Suspect]
     Indication: BREAST CANCER
     Route: 065
  2. XELODA [Suspect]
     Indication: BREAST CANCER
     Dosage: THERAPY START DATE- MAR/2012
     Route: 065
  3. TAXOL [Concomitant]
  4. TAMOXIFEN [Concomitant]
  5. LETROZOLE [Concomitant]
  6. ABRAXANE [Concomitant]
  7. ZOMETA [Concomitant]
  8. LAPATINIB [Concomitant]
     Route: 065
     Dates: start: 201203
  9. TAXOTERE [Concomitant]

REACTIONS (7)
  - Disease progression [Unknown]
  - Metastasis [Unknown]
  - Metastases to skin [Unknown]
  - Metastases to chest wall [Unknown]
  - Metastases to bone [Unknown]
  - Metastases to liver [Unknown]
  - Metastases to central nervous system [Unknown]
